FAERS Safety Report 19478278 (Version 1)
Quarter: 2021Q2

REPORT INFORMATION
  Report Type: Spontaneous
  Country: US (occurrence: US)
  Receive Date: 20210630
  Receipt Date: 20210630
  Transmission Date: 20210717
  Serious: No
  Sender: FDA-Public Use
  Company Number: US-SA-2021SA213060

PATIENT
  Age: 61 Year
  Sex: Male

DRUGS (2)
  1. DUPIXENT [Suspect]
     Active Substance: DUPILUMAB
     Indication: ASTHMA
     Dosage: 300MG, QOW
     Route: 058
     Dates: start: 20210529
  2. FLUCONAZOLE. [Suspect]
     Active Substance: FLUCONAZOLE
     Dosage: UNKNOWN

REACTIONS (4)
  - Skin exfoliation [Unknown]
  - Peripheral swelling [Unknown]
  - Eczema [Unknown]
  - Product use issue [Unknown]

NARRATIVE: CASE EVENT DATE: 20210529
